FAERS Safety Report 8113380-0 (Version None)
Quarter: 2012Q1

REPORT INFORMATION
  Report Type: 
  Country: None (occurrence: None)
  Receive Date: 20120203
  Receipt Date: 20120130
  Transmission Date: 20120608
  Serious: Yes (Life-Threatening, Other)
  Sender: FDA-Public Use
  Company Number: GR-ELI_LILLY_AND_COMPANY-GR201201009195

PATIENT

DRUGS (4)
  1. GEMZAR [Suspect]
     Indication: TRANSITIONAL CELL CARCINOMA
     Dosage: 1100 MG/M2, ON DAYS 1 AND 14 OF EACH 28 DAY CYCLE
     Route: 042
  2. CORTICOSTEROIDS [Concomitant]
     Indication: PREMEDICATION
  3. PLATINOL [Concomitant]
     Indication: TRANSITIONAL CELL CARCINOMA
     Dosage: 80 MG/M2, ON DAY 1 OF EACH 28 DAY CYCLE
  4. TAXOTERE [Concomitant]
     Indication: TRANSITIONAL CELL CARCINOMA
     Dosage: 80 MG/M2, ON DAY 14 OF EACH 28 DAY CYCLE
     Route: 042

REACTIONS (1)
  - CAECITIS [None]
